FAERS Safety Report 16567246 (Version 1)
Quarter: 2019Q3

REPORT INFORMATION
  Report Type: Spontaneous
  Country: JP (occurrence: JP)
  Receive Date: 20190712
  Receipt Date: 20190712
  Transmission Date: 20191004
  Serious: Yes (Other)
  Sender: FDA-Public Use
  Company Number: JP-PFIZER INC-2019286003

PATIENT
  Age: 70 Year

DRUGS (3)
  1. DALACIN S [Suspect]
     Active Substance: CLINDAMYCIN PHOSPHATE
     Dosage: UNK
  2. VANCOMYCIN HCL [Suspect]
     Active Substance: VANCOMYCIN HYDROCHLORIDE
     Dosage: UNK
  3. CEFTAZIDIME. [Suspect]
     Active Substance: CEFTAZIDIME
     Dosage: UNK

REACTIONS (1)
  - Hyponatraemia [Unknown]
